FAERS Safety Report 7006585-3 (Version None)
Quarter: 2010Q3

REPORT INFORMATION
  Report Type: 
  Country: None (occurrence: None)
  Receive Date: 20100921
  Receipt Date: 20100921
  Transmission Date: 20110219
  Serious: Yes (Hospitalization)
  Sender: FDA-Public Use
  Company Number: None

PATIENT
  Age: 33 Year
  Sex: Male
  Weight: 55.2 kg

DRUGS (2)
  1. CLOZAPINE [Suspect]
     Indication: SCHIZOAFFECTIVE DISORDER BIPOLAR TYPE
     Dosage: INITIATED AT: 25 MG DAILY-HS PO
     Route: 048
     Dates: start: 20100612, end: 20100726
  2. CLOZAPINE [Suspect]
     Dosage: DOSE TITRATED TO 200MG PM-MEAL AND HS PO
     Route: 048
     Dates: start: 20100612, end: 20100726

REACTIONS (1)
  - NEUTROPHIL COUNT DECREASED [None]
